FAERS Safety Report 10513909 (Version 2)
Quarter: 2014Q4

REPORT INFORMATION
  Report Type: Spontaneous
  Country: US (occurrence: US)
  Receive Date: 20141013
  Receipt Date: 20141114
  Transmission Date: 20150528
  Serious: Yes (Hospitalization, Other)
  Sender: FDA-Public Use
  Company Number: CHPA2014US013755

PATIENT
  Age: 58 Year
  Sex: Female

DRUGS (5)
  1. NICOTINE TRANSDERMAL SYSTEM STEP 1 [Suspect]
     Active Substance: NICOTINE
     Indication: SMOKING CESSATION THERAPY
     Dosage: 21 MG, UNK
     Route: 062
  2. CVS STRENGTH UNKNOWN [Suspect]
     Active Substance: UNSPECIFIED INGREDIENT
     Indication: SMOKING CESSATION THERAPY
     Route: 062
  3. CHANTIX [Concomitant]
     Active Substance: VARENICLINE TARTRATE
  4. NICODERM CQ [Concomitant]
     Active Substance: NICOTINE
  5. WALGREEN^S STRENGTH UNKNOWN [Suspect]
     Active Substance: UNSPECIFIED INGREDIENT
     Indication: PRODUCT USED FOR UNKNOWN INDICATION
     Route: 062

REACTIONS (8)
  - Thrombosis [Not Recovered/Not Resolved]
  - Expired product administered [Unknown]
  - Hepatic cancer [Not Recovered/Not Resolved]
  - Cataract [Recovered/Resolved]
  - Chronic obstructive pulmonary disease [Recovered/Resolved]
  - Emphysema [Not Recovered/Not Resolved]
  - Cardiac failure congestive [Unknown]
  - Coronary artery disease [Unknown]
